FAERS Safety Report 11112881 (Version 2)
Quarter: 2015Q2

REPORT INFORMATION
  Report Type: Spontaneous
  Country: JP (occurrence: None)
  Receive Date: 20150512
  Receipt Date: 20150616
  Transmission Date: 20150821
  Serious: Yes (Hospitalization)
  Sender: FDA-Public Use
  Company Number: 2015FE01497

PATIENT
  Age: 69 Year
  Sex: Male

DRUGS (10)
  1. DECADRON [Concomitant]
     Active Substance: DEXAMETHASONE
  2. XTANDI [Suspect]
     Active Substance: ENZALUTAMIDE
     Indication: PROSTATE CANCER
     Route: 048
     Dates: start: 20140609, end: 20141212
  3. LASIX [Suspect]
     Active Substance: FUROSEMIDE
     Indication: OEDEMA
     Route: 048
     Dates: start: 20120425, end: 20141215
  4. LASIX [Suspect]
     Active Substance: FUROSEMIDE
     Indication: ENDOCRINE DISORDER
     Route: 048
     Dates: start: 20120425, end: 20141215
  5. TAKEPRON (LANSOPRAZOLE) [Concomitant]
     Active Substance: LANSOPRAZOLE
  6. BAYASPIRIN (ACETYLSALICYLIC ACID) (ACETYLSALICYLIC ACID) [Concomitant]
     Active Substance: ASPIRIN
  7. OLMETEC (OLMESARTAN MEDOXOMIL) [Concomitant]
     Active Substance: OLMESARTAN MEDOXOMIL
  8. PLETAAL (CILOSTAZOL) [Concomitant]
  9. GONAX (DEGARELIX) POWDER AND SOLVENT FOR SOLUTION FOR INJECTION [Suspect]
     Active Substance: DEGARELIX
     Indication: PROSTATE CANCER
     Route: 058
     Dates: start: 20121226, end: 20121226
  10. LOXONIN (LOXOPROFEN SODIUM) [Concomitant]
     Active Substance: LOXOPROFEN SODIUM

REACTIONS (8)
  - Loss of consciousness [None]
  - Blood pressure decreased [None]
  - Long QT syndrome [None]
  - Dysarthria [None]
  - Pallor [None]
  - Sepsis [None]
  - Nausea [None]
  - Electrocardiogram QT prolonged [None]

NARRATIVE: CASE EVENT DATE: 20141210
